FAERS Safety Report 23077155 (Version 3)
Quarter: 2023Q4

REPORT INFORMATION
  Report Type: Spontaneous
  Country: US (occurrence: US)
  Receive Date: 20231018
  Receipt Date: 20231123
  Transmission Date: 20240109
  Serious: No
  Sender: FDA-Public Use
  Company Number: US-DECIPHERA PHARMACEUTICALS LLC-2023US000898

PATIENT
  Age: 61 Year
  Sex: Male

DRUGS (2)
  1. QINLOCK [Suspect]
     Active Substance: RIPRETINIB
     Indication: Gastrointestinal stromal tumour
     Dosage: 150 MILLIGRAM, QD
     Route: 048
     Dates: start: 20230830
  2. TARPEYO [Concomitant]
     Active Substance: BUDESONIDE
     Indication: Chronic kidney disease
     Dosage: UNK

REACTIONS (1)
  - Gingival disorder [Recovering/Resolving]
